FAERS Safety Report 9217705 (Version 1)
Quarter: 2013Q2

REPORT INFORMATION
  Report Type: Spontaneous
  Country: AU (occurrence: AU)
  Receive Date: 20130408
  Receipt Date: 20130408
  Transmission Date: 20140414
  Serious: Yes (Death)
  Sender: FDA-Public Use
  Company Number: AU-ROCHE-1210396

PATIENT
  Age: 69 Year
  Sex: Female
  Weight: 54 kg

DRUGS (2)
  1. XELODA [Suspect]
     Indication: PRODUCT USED FOR UNKNOWN INDICATION
     Route: 048
     Dates: start: 20120123, end: 20120206
  2. OXALIPLATIN [Concomitant]

REACTIONS (6)
  - Nausea [Fatal]
  - Decreased appetite [Fatal]
  - Diarrhoea [Fatal]
  - Dehydration [Fatal]
  - Enterocolitis [Fatal]
  - Sepsis [Fatal]
